FAERS Safety Report 23104901 (Version 3)
Quarter: 2023Q4

REPORT INFORMATION
  Report Type: Report from Study
  Country: EG (occurrence: EG)
  Receive Date: 20231025
  Receipt Date: 20231220
  Transmission Date: 20240109
  Serious: Yes (Life-Threatening, Disabling, Other)
  Sender: FDA-Public Use
  Company Number: EG-002147023-NVSC2023EG225707

PATIENT
  Sex: Male

DRUGS (8)
  1. GILENYA [Suspect]
     Active Substance: FINGOLIMOD HYDROCHLORIDE
     Indication: Multiple sclerosis
     Dosage: 0.5 MG
     Route: 048
  2. GILENYA [Suspect]
     Active Substance: FINGOLIMOD HYDROCHLORIDE
     Dosage: 1 DOSAGE FORM, (PER DAY AT FIRST THEN HIS HCP SHIFTED HIM TO ONE CAPSULE EVERY OTHER DAY)
     Route: 048
     Dates: start: 20160124, end: 202001
  3. OMEGA 3 [Concomitant]
     Active Substance: CAPSAICIN
     Indication: Vitamin supplementation
     Dosage: 1 DOSAGE FORM, QD, (INITIATED WITH GILENYA AND STOPPED)
     Route: 065
     Dates: start: 20230124
  4. OMEGA 3 [Concomitant]
     Active Substance: CAPSAICIN
     Indication: Disturbance in attention
  5. OMEGA 3 [Concomitant]
     Active Substance: CAPSAICIN
     Indication: Memory impairment
  6. CIPRALEX [Concomitant]
     Active Substance: ESCITALOPRAM OXALATE
     Indication: Antidepressant therapy
     Dosage: 1 DOSAGE FORM, QD, (BEFORE SLEEP) (INITIATED WITH GILENYA AND STOPPED)
     Route: 065
     Dates: start: 20160124
  7. ZINC [Concomitant]
     Active Substance: PYRITHIONE ZINC\ZINC\ZINC CHLORIDE
     Indication: Supplementation therapy
     Dosage: 1 DOSAGE FORM, AFTER BREAKFAST, (STOPPED BECAUSE HIS COLON WAS INFLAMMED)
     Route: 065
     Dates: start: 202310
  8. SOLU-MEDROL [Concomitant]
     Active Substance: METHYLPREDNISOLONE SODIUM SUCCINATE
     Indication: Hypersensitivity
     Dosage: 1 G, INFUSED FOR 4 HOURS AT ATTACKS ONLY FOR 3 DAYS
     Route: 065
     Dates: start: 2018

REACTIONS (4)
  - Anaemia [Recovered/Resolved]
  - White blood cell count decreased [Recovered/Resolved]
  - Gait disturbance [Not Recovered/Not Resolved]
  - Mental disorder [Unknown]

NARRATIVE: CASE EVENT DATE: 20190101
